FAERS Safety Report 9511970 (Version 2)
Quarter: 2013Q3

REPORT INFORMATION
  Report Type: Spontaneous
  Country: GB (occurrence: None)
  Receive Date: 20130906
  Receipt Date: 20130917
  Transmission Date: 20140515
  Serious: Yes (Other)
  Sender: FDA-Public Use
  Company Number: AUR-APL-2013-07291

PATIENT
  Age: 31 Year
  Sex: Male

DRUGS (3)
  1. NEVIRAPINE [Suspect]
     Indication: ANTIRETROVIRAL THERAPY
     Dosage: 400 MG (200 MG, 1 IN 1 D)  UNKNOWN
  2. TENOFOVIR [Suspect]
     Indication: ANTIRETROVIRAL THERAPY
  3. EMTRICITABINE [Suspect]
     Indication: ANTIRETROVIRAL THERAPY

REACTIONS (5)
  - Malaise [None]
  - Rash [None]
  - Hepatitis [None]
  - Drug hypersensitivity [None]
  - Secondary syphilis [None]
